FAERS Safety Report 24663148 (Version 1)
Quarter: 2024Q4

REPORT INFORMATION
  Report Type: Spontaneous
  Country: US (occurrence: US)
  Receive Date: 20241126
  Receipt Date: 20241126
  Transmission Date: 20250115
  Serious: Yes (Hospitalization, Other)
  Sender: EPIC PHARM
  Company Number: US-EPICPHARMA-US-2024EPCLIT01470

PATIENT
  Age: 71 Year
  Sex: Male

DRUGS (9)
  1. GENTAMICIN SULFATE [Suspect]
     Active Substance: GENTAMICIN SULFATE
     Indication: Device related infection
     Route: 065
  2. TOBRAMYCIN [Suspect]
     Active Substance: TOBRAMYCIN\TOBRAMYCIN SULFATE
     Indication: Device related infection
     Route: 065
  3. TOBRAMYCIN [Suspect]
     Active Substance: TOBRAMYCIN\TOBRAMYCIN SULFATE
     Route: 065
  4. CEFAZOLIN [Suspect]
     Active Substance: CEFAZOLIN
     Indication: Device related infection
     Route: 042
  5. CEFAZOLIN [Suspect]
     Active Substance: CEFAZOLIN
     Route: 042
  6. CEFAZOLIN [Suspect]
     Active Substance: CEFAZOLIN
     Route: 065
  7. VANCOMYCIN [Suspect]
     Active Substance: VANCOMYCIN
     Indication: Device related infection
     Route: 048
  8. VANCOMYCIN [Suspect]
     Active Substance: VANCOMYCIN
     Route: 065
  9. VANCOMYCIN [Suspect]
     Active Substance: VANCOMYCIN
     Route: 065

REACTIONS (4)
  - Acute kidney injury [Recovering/Resolving]
  - Drug level increased [Recovering/Resolving]
  - Toxicity to various agents [Recovering/Resolving]
  - Product use in unapproved indication [Unknown]
